FAERS Safety Report 4830499-8 (Version None)
Quarter: 2005Q4

REPORT INFORMATION
  Report Type: 
  Country: None (occurrence: None)
  Receive Date: 20051114
  Receipt Date: 20051104
  Transmission Date: 20060501
  Serious: Yes (Other)
  Sender: FDA-Public Use
  Company Number: USA0511112758

PATIENT
  Age: 59 Year
  Sex: Female
  Weight: 98 kg

DRUGS (6)
  1. ZYPREXA [Suspect]
     Indication: NEUROTRANSMITTER LEVEL ALTERED
     Dosage: 12.5 MG IN THE MORNING
     Dates: start: 20000101
  2. FLUOXETINE HYDROCHLORIDE [Concomitant]
  3. LORAZEPAM [Concomitant]
  4. ALLEGRA [Concomitant]
  5. LEVOXYL [Concomitant]
  6. ACTONEL [Concomitant]

REACTIONS (2)
  - BREAST CANCER [None]
  - WEIGHT INCREASED [None]
